FAERS Safety Report 8430754-9 (Version None)
Quarter: 2012Q2

REPORT INFORMATION
  Report Type: 
  Country: None (occurrence: None)
  Receive Date: 20120612
  Receipt Date: 20120531
  Transmission Date: 20120825
  Serious: Yes (Other)
  Sender: FDA-Public Use
  Company Number: US-ELI_LILLY_AND_COMPANY-US201205001014

PATIENT
  Sex: Female

DRUGS (18)
  1. SPIRONOLACTONE [Concomitant]
  2. NORTRIPTYLINE HCL [Concomitant]
     Dosage: 25 MG, QD
  3. EXEMESTANE [Concomitant]
  4. HYDROCHLOROTHIAZIDE [Concomitant]
  5. CELEXA [Concomitant]
  6. AMLODIPINE BESYLATE [Concomitant]
  7. COREG [Concomitant]
  8. FAMOTIDINE [Concomitant]
  9. NABUTON [Concomitant]
  10. PROTONIX [Concomitant]
  11. LIPITOR [Concomitant]
  12. SYNTHROID [Concomitant]
  13. KLOR-CON [Concomitant]
  14. ASPIRIN [Concomitant]
  15. FORTEO [Suspect]
     Indication: OSTEOPOROSIS
     Dosage: 20 UG, QD
     Dates: start: 20120201
  16. NORTRIPTYLINE HCL [Concomitant]
     Dosage: 50 MG, QD
  17. EPIPEN [Concomitant]
     Dosage: UNK, PRN
  18. BELLADONNA AND PHENOBARBITONE [Concomitant]
     Dosage: UNK, PRN

REACTIONS (4)
  - ARTHRALGIA [None]
  - SKIN CANCER [None]
  - FEELING HOT [None]
  - FALL [None]
